FAERS Safety Report 10087203 (Version 2)
Quarter: 2014Q2

REPORT INFORMATION
  Report Type: Report from Study
  Country: CA (occurrence: CA)
  Receive Date: 20140418
  Receipt Date: 20140418
  Transmission Date: 20141212
  Serious: Yes (Death, Hospitalization)
  Sender: FDA-Public Use
  Company Number: CA-ASTRAZENECA-2014SE08837

PATIENT
  Age: 74 Year
  Sex: Male

DRUGS (1)
  1. ZOLADEX LA [Suspect]
     Indication: PROSTATE CANCER
     Route: 058
     Dates: start: 20090806, end: 20140123

REACTIONS (2)
  - Death [Fatal]
  - Pulmonary embolism [Unknown]
